FAERS Safety Report 21534759 (Version 1)
Quarter: 2022Q4

REPORT INFORMATION
  Report Type: Spontaneous
  Country: US (occurrence: US)
  Receive Date: 20221101
  Receipt Date: 20221101
  Transmission Date: 20230112
  Serious: No
  Sender: FDA-Public Use
  Company Number: US-MIGRATION_PFIZER-2022BHV001800

PATIENT
  Age: 75 Year
  Sex: Female
  Weight: 67.646 kg

DRUGS (3)
  1. NURTEC ODT [Suspect]
     Active Substance: RIMEGEPANT SULFATE
     Indication: Migraine
     Route: 065
     Dates: start: 202205
  2. NURTEC ODT [Suspect]
     Active Substance: RIMEGEPANT SULFATE
     Dosage: PREVENTIVE USE
     Route: 065
     Dates: start: 20220607
  3. DIETARY SUPPLEMENT [Concomitant]
     Active Substance: DIETARY SUPPLEMENT
     Indication: Migraine
     Route: 065

REACTIONS (4)
  - Weight increased [Unknown]
  - Malaise [Unknown]
  - Drug ineffective [Unknown]
  - Migraine [Unknown]
